FAERS Safety Report 22320620 (Version 1)
Quarter: 2023Q2

REPORT INFORMATION
  Report Type: Spontaneous
  Country: IT (occurrence: IT)
  Receive Date: 20230515
  Receipt Date: 20230515
  Transmission Date: 20230721
  Serious: Yes (Hospitalization, Other)
  Sender: FDA-Public Use
  Company Number: IT-PFIZER INC-PV202300084681

PATIENT
  Age: 63 Year
  Sex: Male

DRUGS (1)
  1. BOSUTINIB [Suspect]
     Active Substance: BOSUTINIB
     Indication: Chronic myeloid leukaemia
     Dosage: UNK
     Dates: start: 201708

REACTIONS (6)
  - Dyspnoea [Unknown]
  - Hepatotoxicity [Unknown]
  - Hepatic cirrhosis [Unknown]
  - Cardiac failure [Unknown]
  - Gastrointestinal toxicity [Unknown]
  - Pleural effusion [Unknown]

NARRATIVE: CASE EVENT DATE: 20171101
